FAERS Safety Report 9685042 (Version 1)
Quarter: 2013Q4

REPORT INFORMATION
  Report Type: Report from Study
  Country: CA (occurrence: CA)
  Receive Date: 20131113
  Receipt Date: 20131113
  Transmission Date: 20140711
  Serious: Yes (Other)
  Sender: FDA-Public Use
  Company Number: CA-JNJFOC-20131104054

PATIENT
  Age: 40 Year
  Sex: Male
  Weight: 98.3 kg

DRUGS (2)
  1. REMICADE [Suspect]
     Indication: COLITIS ULCERATIVE
     Route: 042
     Dates: start: 20130927
  2. ASACOL [Concomitant]
     Route: 065

REACTIONS (1)
  - Blood test abnormal [Recovering/Resolving]
